FAERS Safety Report 10889867 (Version 1)
Quarter: 2015Q1

REPORT INFORMATION
  Report Type: Spontaneous
  Country: US (occurrence: US)
  Receive Date: 20150305
  Receipt Date: 20150305
  Transmission Date: 20150721
  Serious: Yes (Other)
  Sender: FDA-Public Use
  Company Number: US-EISAI MEDICAL RESEARCH-E2090-02406-SPO-US

PATIENT
  Age: 62 Year
  Sex: Female

DRUGS (16)
  1. LAMICTAL XR [Interacting]
     Active Substance: LAMOTRIGINE
     Dosage: 600 MG/DAY
     Route: 048
     Dates: start: 20131124, end: 2013
  2. LAMICTAL XR [Interacting]
     Active Substance: LAMOTRIGINE
     Dosage: 600 MG/DAY
     Route: 048
     Dates: start: 20131212
  3. LAMICTAL XR [Interacting]
     Active Substance: LAMOTRIGINE
     Dosage: 500 MG/DAY
     Route: 048
     Dates: start: 201312, end: 20131211
  4. ZONEGRAN [Interacting]
     Active Substance: ZONISAMIDE
     Dosage: 300 MG/DAY
     Route: 048
     Dates: start: 201311, end: 2013
  5. LAMICTAL XR [Interacting]
     Active Substance: LAMOTRIGINE
     Indication: PARTIAL SEIZURES
     Route: 048
     Dates: end: 20120208
  6. ZONEGRAN [Interacting]
     Active Substance: ZONISAMIDE
     Dosage: 300 MG/DAY
     Route: 048
     Dates: start: 201210, end: 201308
  7. LAMICTAL XR [Interacting]
     Active Substance: LAMOTRIGINE
     Dosage: 400 MG/DAY
     Route: 048
     Dates: start: 2013, end: 201312
  8. LAMICTAL XR [Interacting]
     Active Substance: LAMOTRIGINE
     Dates: start: 2014
  9. ASPIRIN. [Concomitant]
     Active Substance: ASPIRIN
     Indication: PRODUCT USED FOR UNKNOWN INDICATION
     Dates: start: 201308
  10. CELEXA [Concomitant]
     Active Substance: CITALOPRAM HYDROBROMIDE
     Indication: DEPRESSION
     Dosage: UNKNOWN
     Dates: end: 2014
  11. ZONEGRAN [Interacting]
     Active Substance: ZONISAMIDE
     Dosage: 400 MG/DAY
     Route: 048
     Dates: start: 201308, end: 201311
  12. ZONEGRAN [Interacting]
     Active Substance: ZONISAMIDE
     Route: 048
     Dates: start: 201308, end: 201405
  13. LAMICTAL XR [Interacting]
     Active Substance: LAMOTRIGINE
     Dosage: 200 MG/DAY
     Dates: start: 20120209, end: 20131123
  14. TRAZODONE [Concomitant]
     Active Substance: TRAZODONE HYDROCHLORIDE
     Indication: SLEEP DISORDER
     Dosage: UNKNOWN
     Dates: start: 1999
  15. ZONEGRAN [Suspect]
     Active Substance: ZONISAMIDE
     Indication: EPILEPSY
     Dosage: 100 MG/DAY
     Route: 048
     Dates: start: 2012, end: 201210
  16. LAMICTAL XR [Interacting]
     Active Substance: LAMOTRIGINE
     Dosage: 600 MG/DAY
     Route: 048
     Dates: start: 201312, end: 201312

REACTIONS (18)
  - Dissociation [Recovered/Resolved]
  - Dizziness [Recovered/Resolved]
  - Drug interaction [Recovered/Resolved]
  - Nephrolithiasis [Recovered/Resolved]
  - Glossodynia [Not Recovered/Not Resolved]
  - Paraesthesia oral [Not Recovered/Not Resolved]
  - Aphasia [Not Recovered/Not Resolved]
  - Hypokinesia [Recovered/Resolved]
  - Cough [Not Recovered/Not Resolved]
  - Agitation [Recovered/Resolved]
  - Fatigue [Recovered/Resolved]
  - Palpitations [Recovered/Resolved]
  - Dyspnoea [Recovering/Resolving]
  - Incorrect dose administered [Not Recovered/Not Resolved]
  - Anger [Recovered/Resolved]
  - Partial seizures [Recovered/Resolved]
  - Musculoskeletal chest pain [Recovered/Resolved]
  - Nausea [Not Recovered/Not Resolved]

NARRATIVE: CASE EVENT DATE: 2012
